FAERS Safety Report 13687038 (Version 9)
Quarter: 2018Q1

REPORT INFORMATION
  Report Type: Report from Study
  Country: CH (occurrence: CH)
  Receive Date: 20170623
  Receipt Date: 20180222
  Transmission Date: 20180508
  Serious: Yes (Life-Threatening, Hospitalization, Other)
  Sender: FDA-Public Use
  Company Number: PHHY2017CH091377

PATIENT
  Sex: Male
  Weight: 93 kg

DRUGS (16)
  1. AMLODIPINE [Concomitant]
     Active Substance: AMLODIPINE BESYLATE
     Indication: BLOOD PRESSURE INCREASED
     Dosage: 5 MG, QHS
     Route: 048
     Dates: end: 20171222
  2. METO ZEROK [Suspect]
     Active Substance: METOPROLOL SUCCINATE
     Indication: CARDIAC FAILURE CHRONIC
     Dosage: 50 MG, BID
     Route: 065
     Dates: start: 201601, end: 20171004
  3. ASPIRIN CARDIO [Concomitant]
     Active Substance: ASPIRIN
     Indication: PRODUCT USED FOR UNKNOWN INDICATION
     Dosage: 100 MG, QD
     Route: 048
     Dates: end: 20171222
  4. TOREM [Concomitant]
     Active Substance: TORSEMIDE
     Indication: PRODUCT USED FOR UNKNOWN INDICATION
     Dosage: 5 MG, QD
     Route: 048
  5. MARCUMAR [Concomitant]
     Active Substance: PHENPROCOUMON
     Indication: PRODUCT USED FOR UNKNOWN INDICATION
     Dosage: ACCORDING TO INR VALUES
     Route: 048
  6. ESOMEP [Concomitant]
     Active Substance: ESOMEPRAZOLE
     Indication: PROPHYLAXIS
     Dosage: 40 MG, QD
     Route: 048
     Dates: start: 20171222
  7. METO ZEROK [Suspect]
     Active Substance: METOPROLOL SUCCINATE
     Dosage: 150 MG, QD
     Route: 065
     Dates: start: 20171004, end: 20171222
  8. ATACAND [Concomitant]
     Active Substance: CANDESARTAN CILEXETIL
     Indication: HYPERTENSION
     Dosage: 4 MG, QD
     Route: 048
     Dates: end: 20171222
  9. ATORVASTATIN PFIZER [Concomitant]
     Active Substance: ATORVASTATIN
     Indication: HYPERCHOLESTEROLAEMIA
     Dosage: 40 MG, QHS
     Route: 048
  10. LYRICA [Concomitant]
     Active Substance: PREGABALIN
     Indication: PRODUCT USED FOR UNKNOWN INDICATION
     Dosage: 100 MG, QD
     Route: 048
     Dates: start: 20170310, end: 20171222
  11. TOREM [Concomitant]
     Active Substance: TORSEMIDE
     Dosage: 20 MG, QD
     Route: 048
     Dates: start: 20171222
  12. AVELOX [Concomitant]
     Active Substance: MOXIFLOXACIN HYDROCHLORIDE
     Indication: ANTIBIOTIC THERAPY
     Dosage: 400 MG, QD
     Route: 048
     Dates: start: 20171222
  13. FRAGMIN [Concomitant]
     Active Substance: DALTEPARIN SODIUM
     Indication: PRODUCT USED FOR UNKNOWN INDICATION
     Dosage: UNK
     Route: 058
     Dates: start: 20171222
  14. PRADIF [Concomitant]
     Active Substance: TAMSULOSIN HYDROCHLORIDE
     Indication: PROSTATIC DISORDER
     Dosage: 0.4 MG, QD
     Route: 048
     Dates: start: 20171222
  15. PREDNISONE. [Concomitant]
     Active Substance: PREDNISONE
     Indication: CORTISOL ABNORMAL
     Dosage: 20 MG, QD
     Route: 048
     Dates: start: 20171222
  16. BELOZOK [Concomitant]
     Active Substance: METOPROLOL SUCCINATE
     Indication: CARDIAC DISORDER
     Dosage: 100 MG, QD
     Route: 048
     Dates: start: 20171222

REACTIONS (18)
  - Hip fracture [Recovering/Resolving]
  - Spinal cord abscess [Recovered/Resolved]
  - Fatigue [Not Recovered/Not Resolved]
  - Weight increased [Recovered/Resolved]
  - Dysstasia [Recovered/Resolved]
  - Oedema peripheral [Recovering/Resolving]
  - Angina pectoris [Unknown]
  - Muscle atrophy [Unknown]
  - Dyspnoea [Recovered/Resolved]
  - Localised oedema [Recovered/Resolved]
  - Depression [Unknown]
  - Nocturia [Unknown]
  - Extradural abscess [Recovered/Resolved]
  - Renal impairment [Unknown]
  - Nasopharyngitis [Unknown]
  - Infection [Recovered/Resolved]
  - Gait disturbance [Recovering/Resolving]
  - Ophthalmic herpes zoster [Recovered/Resolved]

NARRATIVE: CASE EVENT DATE: 201702
